FAERS Safety Report 4306218-0 (Version None)
Quarter: 2004Q1

REPORT INFORMATION
  Report Type: 
  Country: None (occurrence: None)
  Receive Date: 20040225
  Receipt Date: 20030328
  Transmission Date: 20041129
  Serious: No
  Sender: FDA-Public Use
  Company Number: US-BRISTOL-MYERS SQUIBB COMPANY-12227161

PATIENT
  Age: 61 Year
  Sex: Male
  Weight: 104 kg

DRUGS (3)
  1. EXCEDRIN (MIGRAINE) [Suspect]
     Indication: MIGRAINE
     Dosage: DOSING: UP TO 6 TABLETS DAILY, AS NEEDED.
     Route: 048
  2. EXCEDRIN (MIGRAINE) [Suspect]
     Indication: PAIN
     Dosage: DOSING: UP TO 6 TABLETS DAILY, AS NEEDED.
     Route: 048
  3. EXCEDRIN (MIGRAINE) [Suspect]
     Indication: ARTHRITIS
     Dosage: DOSING: UP TO 6 TABLETS DAILY, AS NEEDED.
     Route: 048

REACTIONS (3)
  - ABDOMINAL PAIN UPPER [None]
  - LETHARGY [None]
  - NAUSEA [None]
